FAERS Safety Report 6069034-8 (Version None)
Quarter: 2009Q1

REPORT INFORMATION
  Report Type: 
  Country: None (occurrence: None)
  Receive Date: 20090206
  Receipt Date: 20090129
  Transmission Date: 20090719
  Serious: Yes (Hospitalization, Other)
  Sender: FDA-Public Use
  Company Number: US-WYE-H07303908

PATIENT
  Sex: Female

DRUGS (2)
  1. PREMPRO/PREMPHASE [Suspect]
  2. PREMARIN [Suspect]

REACTIONS (1)
  - BREAST CANCER METASTATIC [None]
